FAERS Safety Report 8102309-7 (Version None)
Quarter: 2012Q1

REPORT INFORMATION
  Report Type: 
  Country: None (occurrence: None)
  Receive Date: 20120131
  Receipt Date: 20120131
  Transmission Date: 20120608
  Serious: Yes (Other)
  Sender: FDA-Public Use
  Company Number: None

PATIENT
  Age: 67 Year
  Sex: Female
  Weight: 81.6475 kg

DRUGS (1)
  1. CRESTOR [Suspect]
     Indication: DRUG INTOLERANCE
     Dosage: 10 MG 1/DAY ORAL
     Route: 048
     Dates: start: 20110823, end: 20111227

REACTIONS (5)
  - FATIGUE [None]
  - PAIN IN EXTREMITY [None]
  - GOUT [None]
  - LIGAMENT SPRAIN [None]
  - HYPOTHYROIDISM [None]
